FAERS Safety Report 4960845-6 (Version None)
Quarter: 2006Q1

REPORT INFORMATION
  Report Type: 
  Country: None (occurrence: None)
  Receive Date: 20060329
  Receipt Date: 20060316
  Transmission Date: 20060701
  Serious: Yes (Other)
  Sender: FDA-Public Use
  Company Number: 2006037862

PATIENT
  Age: 17 Year
  Sex: Female
  Weight: 58 kg

DRUGS (2)
  1. CLINDAMYCIN HCL [Suspect]
     Indication: TOOTH ABSCESS
     Dosage: 600 MG (300 MG, 2 IN 1 D) ORAL
     Route: 048
     Dates: start: 20051006, end: 20051015
  2. NIMESULIDE [Concomitant]

REACTIONS (3)
  - ERYTHEMA MULTIFORME [None]
  - SKIN TEST POSITIVE [None]
  - TOXIC SKIN ERUPTION [None]
